FAERS Safety Report 22066090 (Version 3)
Quarter: 2024Q2

REPORT INFORMATION
  Report Type: Spontaneous
  Country: JP (occurrence: JP)
  Receive Date: 20230306
  Receipt Date: 20240620
  Transmission Date: 20240716
  Serious: Yes (Death)
  Sender: FDA-Public Use
  Company Number: JP-ABBVIE-4329759

PATIENT
  Age: 70 Year
  Sex: Male

DRUGS (2)
  1. VENCLEXTA [Suspect]
     Active Substance: VENETOCLAX
     Indication: Leukaemia monocytic
     Dosage: 400 MILLIGRAM; LAB TESTS MONOCYTES, NEUTROPHILS AND WBC WAS IN 2023?LAST ADMIN DATE 09 MAR 2023
     Route: 048
     Dates: start: 20230126
  2. AZACITIDINE [Concomitant]
     Active Substance: AZACITIDINE
     Indication: Leukaemia monocytic
     Dosage: 75 MG/M2; DURATION: THREE CYCLES
     Route: 041
     Dates: start: 20230126

REACTIONS (6)
  - Acute myeloid leukaemia [Fatal]
  - Neutrophil count decreased [Unknown]
  - Pneumonia [Unknown]
  - Monocyte count increased [Unknown]
  - White blood cell count increased [Unknown]
  - Drug ineffective [Unknown]
